FAERS Safety Report 23691012 (Version 2)
Quarter: 2024Q2

REPORT INFORMATION
  Report Type: Report from Study
  Country: US (occurrence: US)
  Receive Date: 20240401
  Receipt Date: 20240521
  Transmission Date: 20240716
  Serious: Yes (Other)
  Sender: FDA-Public Use
  Company Number: US-TAKEDA-2024TUS029091

PATIENT
  Sex: Female

DRUGS (2)
  1. VEDOLIZUMAB [Suspect]
     Active Substance: VEDOLIZUMAB
     Indication: Polyarthritis
     Dosage: 300 MILLIGRAM
     Route: 042
     Dates: start: 202102
  2. VEDOLIZUMAB [Suspect]
     Active Substance: VEDOLIZUMAB
     Indication: Colitis

REACTIONS (3)
  - Polyarthritis [Unknown]
  - Colitis [Unknown]
  - Product use in unapproved indication [Unknown]
